FAERS Safety Report 18272265 (Version 1)
Quarter: 2020Q3

REPORT INFORMATION
  Report Type: Spontaneous
  Country: FR (occurrence: FR)
  Receive Date: 20200916
  Receipt Date: 20200916
  Transmission Date: 20201103
  Serious: Yes (Other)
  Sender: FDA-Public Use
  Company Number: FR-TEVA-2020-FR-1826808

PATIENT
  Age: 83 Year
  Sex: Male
  Weight: 77.3 kg

DRUGS (3)
  1. LAROXYL ROCHE [AMITRIPTYLINE HYDROCHLORIDE] [Suspect]
     Active Substance: AMITRIPTYLINE HYDROCHLORIDE
     Indication: NEURALGIA
     Dosage: 10 GTT
     Route: 048
     Dates: start: 20200707, end: 20200709
  2. PARACETAMOL [Concomitant]
     Active Substance: ACETAMINOPHEN
     Route: 048
     Dates: end: 20200709
  3. PREGABALINE TEVA 25 MG, GELULE [Suspect]
     Active Substance: PREGABALIN
     Indication: NEURALGIA
     Dosage: 50 MG
     Route: 048
     Dates: start: 20200704, end: 20200709

REACTIONS (2)
  - Hepatic pain [Recovered/Resolved]
  - Hepatocellular injury [Recovered/Resolved]

NARRATIVE: CASE EVENT DATE: 20200709
